FAERS Safety Report 8145977-6 (Version None)
Quarter: 2012Q1

REPORT INFORMATION
  Report Type: 
  Country: None (occurrence: None)
  Receive Date: 20120217
  Receipt Date: 20120109
  Transmission Date: 20120608
  Serious: No
  Sender: FDA-Public Use
  Company Number: US-ALLERGAN-1101041US

PATIENT
  Age: 26 Year
  Sex: Female

DRUGS (2)
  1. TAZORAC [Suspect]
     Indication: ACNE
     Dosage: UNK
     Route: 061
     Dates: start: 20101001, end: 20110120
  2. BENZACLIN [Suspect]
     Indication: PRODUCT USED FOR UNKNOWN INDICATION
     Dosage: UNK
     Route: 061
     Dates: start: 20101014, end: 20110120

REACTIONS (1)
  - PREGNANCY [None]
